FAERS Safety Report 8406040-X (Version None)
Quarter: 2012Q2

REPORT INFORMATION
  Report Type: 
  Country: None (occurrence: None)
  Receive Date: 20120529
  Receipt Date: 20060222
  Transmission Date: 20120825
  Serious: Yes (Hospitalization)
  Sender: FDA-Public Use
  Company Number: 15691-USA-06-0586

PATIENT
  Age: 70 Year
  Sex: Male

DRUGS (14)
  1. TRAMADOL HCL [Concomitant]
  2. CARBAMAZEPINE [Concomitant]
  3. MOLSIDOMIN (MOLSIDOMINE) [Concomitant]
  4. PHENOPROCOUMON [Concomitant]
  5. EPLERENON (EPLERENONE) [Concomitant]
  6. TOLVAPTAN (TOLVAPTAN(V4.1)) 30MG [Suspect]
     Indication: CARDIAC FAILURE CONGESTIVE
     Dosage: 30 MG,QD, ORAL
     Route: 048
     Dates: start: 20051123
  7. ALLOPURINOL [Concomitant]
  8. LOSARTAN [Concomitant]
  9. CARVEDILOL [Concomitant]
  10. ISOSORBIDE DINITRATE [Concomitant]
  11. XIPAMID (XIPAMIDE) [Concomitant]
  12. ESOMEZOL [Concomitant]
  13. INSULIN [Concomitant]
  14. OMEPRAZOLE [Concomitant]

REACTIONS (7)
  - CARDIAC FAILURE [None]
  - CONDITION AGGRAVATED [None]
  - TRICUSPID VALVE INCOMPETENCE [None]
  - HYPOCHROMIC ANAEMIA [None]
  - BUNDLE BRANCH BLOCK RIGHT [None]
  - PULMONARY HYPERTENSION [None]
  - ATRIAL FIBRILLATION [None]
